FAERS Safety Report 10911434 (Version 1)
Quarter: 2015Q1

REPORT INFORMATION
  Report Type: Spontaneous
  Country: RU (occurrence: RU)
  Receive Date: 20150313
  Receipt Date: 20150313
  Transmission Date: 20150721
  Serious: Yes (Other)
  Sender: FDA-Public Use
  Company Number: RU-ROCHE-1550920

PATIENT
  Age: 63 Year
  Sex: Female

DRUGS (5)
  1. DEXAMETHASONE. [Suspect]
     Active Substance: DEXAMETHASONE
     Indication: EYE OPERATION
     Route: 050
  2. TOBRADEX [Suspect]
     Active Substance: DEXAMETHASONE\TOBRAMYCIN
     Indication: POSTOPERATIVE CARE
     Route: 047
  3. RANIBIZUMAB [Suspect]
     Active Substance: RANIBIZUMAB
     Indication: EYE OPERATION
     Route: 050
  4. 5-FLUOROURACIL [Suspect]
     Active Substance: FLUOROURACIL
     Indication: EYE OPERATION
     Route: 050
  5. NEVANAC [Suspect]
     Active Substance: NEPAFENAC
     Indication: POSTOPERATIVE CARE
     Route: 047

REACTIONS (4)
  - Choroidal effusion [Recovered/Resolved]
  - Off label use [Unknown]
  - Corneal decompensation [Recovered/Resolved]
  - Ocular hypertension [Recovered/Resolved]
